FAERS Safety Report 10403871 (Version 1)
Quarter: 2014Q1

REPORT INFORMATION
  Report Type: Spontaneous
  Country: US (occurrence: None)
  Receive Date: 20130815
  Receipt Date: 20130815
  Transmission Date: 20141002
  Serious: Yes (Hospitalization)
  Sender: FDA-Public Use
  Company Number: ADR-2012-01850

PATIENT
  Age: 46 Year
  Sex: Female

DRUGS (1)
  1. LIORESAL INTRATHECAL (BACLOFEN INJECTION) [Suspect]
     Indication: MUSCLE SPASTICITY

REACTIONS (6)
  - Constipation [None]
  - Intracranial hypotension [None]
  - Fall [None]
  - Post lumbar puncture syndrome [None]
  - Wound dehiscence [None]
  - Implant site infection [None]
